FAERS Safety Report 10282053 (Version 3)
Quarter: 2014Q3

REPORT INFORMATION
  Report Type: Spontaneous
  Country: BR (occurrence: BR)
  Receive Date: 20140707
  Receipt Date: 20140915
  Transmission Date: 20150326
  Serious: Yes (Other)
  Sender: FDA-Public Use
  Company Number: BR-GLAXOSMITHKLINE-A1079991A

PATIENT
  Age: 75 Year
  Sex: Male
  Weight: 75 kg

DRUGS (1)
  1. AVAMYS [Suspect]
     Active Substance: FLUTICASONE FUROATE
     Indication: RESPIRATORY DISORDER
     Route: 045
     Dates: start: 20140523

REACTIONS (2)
  - Product quality issue [Unknown]
  - Pneumonia [Recovering/Resolving]

NARRATIVE: CASE EVENT DATE: 20140616
